FAERS Safety Report 20833312 (Version 1)
Quarter: 2022Q2

REPORT INFORMATION
  Report Type: Spontaneous
  Country: US (occurrence: None)
  Receive Date: 20220516
  Receipt Date: 20220516
  Transmission Date: 20220720
  Serious: No
  Sender: FDA-Public Use
  Company Number: 2022A181478

PATIENT

DRUGS (1)
  1. EVUSHELD [Suspect]
     Active Substance: CILGAVIMAB\TIXAGEVIMAB
     Dosage: (TIXAGEVIMAB 150 AND CILGAVIMAB 150) AND ADMINISTERED AS ONE INJECTION
     Route: 030

REACTIONS (2)
  - Product preparation issue [Unknown]
  - Wrong technique in product usage process [Unknown]
